FAERS Safety Report 6336350-1 (Version None)
Quarter: 2009Q3

REPORT INFORMATION
  Report Type: 
  Country: None (occurrence: None)
  Receive Date: 20090828
  Receipt Date: 20090421
  Transmission Date: 20100115
  Serious: No
  Sender: FDA-Public Use
  Company Number: ES-GUERBET-20090006

PATIENT
  Age: 26 Year
  Sex: Male

DRUGS (3)
  1. HEXABRIX [Suspect]
     Indication: ANGIOGRAM
     Dosage: 200, ML MILLILITRE(S), 1 , 1 TOTAL INTRA-ARTERIAL
     Route: 013
     Dates: start: 20080611, end: 20080611
  2. RANITIDINE [Concomitant]
  3. SINTROM [Concomitant]

REACTIONS (3)
  - ANGIOEDEMA [None]
  - BRONCHOSPASM PARADOXICAL [None]
  - RASH RUBELLIFORM [None]
